FAERS Safety Report 18483668 (Version 2)
Quarter: 2021Q1

REPORT INFORMATION
  Report Type: Report from Study
  Country: US (occurrence: US)
  Receive Date: 20201109
  Receipt Date: 20210122
  Transmission Date: 20210419
  Serious: Yes (Death, Life-Threatening, Other)
  Sender: FDA-Public Use
  Company Number: US-GILEAD-2020-0502183

PATIENT
  Age: 60 Year
  Sex: Male
  Weight: 76.5 kg

DRUGS (68)
  1. REMDESIVIR. [Suspect]
     Active Substance: REMDESIVIR
     Indication: COVID-19 PNEUMONIA
     Dosage: 200 MG, ONCE, LOADING DOSE
     Route: 042
     Dates: start: 20201015, end: 20201015
  2. NOREPINEPHRINE. [Concomitant]
     Active Substance: NOREPINEPHRINE
     Dosage: UNK
     Dates: start: 20201019, end: 20201030
  3. IOHEXOL [Concomitant]
     Active Substance: IOHEXOL
     Dosage: UNK
     Dates: start: 20201015, end: 20201015
  4. OXYGEN. [Concomitant]
     Active Substance: OXYGEN
     Dosage: 50 L/MIN
     Route: 055
     Dates: start: 20201015
  5. OXYGEN. [Concomitant]
     Active Substance: OXYGEN
     Dosage: 100 %
     Route: 007
     Dates: start: 20201025
  6. OXYGEN. [Concomitant]
     Active Substance: OXYGEN
     Dosage: 50 L/MIN
     Route: 055
     Dates: start: 20201015
  7. FUROSEMIDE. [Concomitant]
     Active Substance: FUROSEMIDE
     Dosage: UNK
     Dates: start: 20201020, end: 20201020
  8. INSULIN LISPRO [Concomitant]
     Active Substance: INSULIN LISPRO
     Dosage: UNK
     Dates: start: 20201015, end: 20201024
  9. PANTOPRAZOLE [Concomitant]
     Active Substance: PANTOPRAZOLE
     Indication: STRESS ULCER
     Dosage: UNK
     Dates: start: 20201027, end: 20201030
  10. VASOPRESSIN. [Concomitant]
     Active Substance: VASOPRESSIN
     Dosage: UNK
     Dates: start: 20201024, end: 20201030
  11. OXYGEN. [Concomitant]
     Active Substance: OXYGEN
     Dosage: 100 %
     Route: 007
     Dates: start: 20201028
  12. AMIODARONE [Concomitant]
     Active Substance: AMIODARONE
     Indication: ATRIAL FIBRILLATION
     Dosage: UNK
     Dates: start: 20201028, end: 20201028
  13. HYDROCORTISONE. [Concomitant]
     Active Substance: HYDROCORTISONE
     Dosage: UNK
     Dates: start: 20201025, end: 20201030
  14. INSULIN [Concomitant]
     Active Substance: INSULIN NOS
     Dosage: UNK
     Dates: start: 20201022, end: 20201030
  15. OXYGEN. [Concomitant]
     Active Substance: OXYGEN
     Dosage: 60 L/MIN
     Route: 055
     Dates: start: 20201016
  16. OXYGEN. [Concomitant]
     Active Substance: OXYGEN
     Dosage: 50 %
     Route: 007
     Dates: start: 20201021
  17. OXYGEN. [Concomitant]
     Active Substance: OXYGEN
     Dosage: 50 %
     Route: 007
     Dates: start: 20201019
  18. OXYGEN. [Concomitant]
     Active Substance: OXYGEN
     Dosage: 100 %
     Route: 007
     Dates: start: 20201026
  19. OXYGEN. [Concomitant]
     Active Substance: OXYGEN
     Dosage: 100 %
     Route: 007
     Dates: start: 20201024
  20. CEFEPIME [Concomitant]
     Active Substance: CEFEPIME HYDROCHLORIDE
     Indication: PNEUMONIA
     Dosage: UNK
     Dates: start: 20201024, end: 20201030
  21. DOCUSATE SODIUM. [Concomitant]
     Active Substance: DOCUSATE SODIUM
     Indication: CONSTIPATION
     Dosage: UNK
     Dates: start: 20201020, end: 20201023
  22. EPINEPHRINE. [Concomitant]
     Active Substance: EPINEPHRINE
     Indication: HYPOXIA
     Dosage: 0.75 MG
     Dates: start: 20201024, end: 20201024
  23. FAMOTIDINE. [Concomitant]
     Active Substance: FAMOTIDINE
     Dosage: 20 MG
     Dates: start: 20201015, end: 20201027
  24. MIDAZOLAM. [Concomitant]
     Active Substance: MIDAZOLAM
     Dosage: UNK
     Dates: start: 20201019, end: 20201029
  25. ROCURONIUM [Concomitant]
     Active Substance: ROCURONIUM BROMIDE
     Dosage: UNK
     Dates: start: 20201019, end: 20201019
  26. POTASSIUM CHLORIDE. [Concomitant]
     Active Substance: POTASSIUM CHLORIDE
     Dosage: UNK
     Dates: start: 20201018, end: 20201018
  27. OXYGEN. [Concomitant]
     Active Substance: OXYGEN
     Dosage: 50 %
     Route: 007
     Dates: start: 20201023
  28. ENOXAPARIN [Concomitant]
     Active Substance: ENOXAPARIN
     Dosage: UNK
     Dates: start: 20201015, end: 20201030
  29. EPINEPHRINE. [Concomitant]
     Active Substance: EPINEPHRINE
     Dosage: 500 ML
     Dates: start: 20201024, end: 20201025
  30. METRONIDAZOLE. [Concomitant]
     Active Substance: METRONIDAZOLE
     Indication: PNEUMONIA
     Dosage: UNK
     Dates: start: 20201024, end: 20201029
  31. POLYETHYLENE GLYCOL [MACROGOL] [Concomitant]
     Active Substance: POLYETHYLENE GLYCOLS
     Dosage: UNK
     Dates: start: 20201019, end: 20201029
  32. SENNA [Concomitant]
     Active Substance: SENNA LEAF\SENNOSIDES\SENNOSIDES A AND B
     Dosage: UNK
     Dates: start: 20201020, end: 20201023
  33. SODIUM CHLORIDE. [Concomitant]
     Active Substance: SODIUM CHLORIDE
     Dosage: UNK
     Dates: start: 20201022, end: 20201030
  34. FENTANYL. [Concomitant]
     Active Substance: FENTANYL
     Dosage: UNK
     Dates: start: 20201019, end: 20201029
  35. ETOMIDATE. [Concomitant]
     Active Substance: ETOMIDATE
     Indication: ANAESTHESIA
     Dosage: UNK
     Dates: start: 20201019, end: 20201019
  36. OXYGEN. [Concomitant]
     Active Substance: OXYGEN
     Dosage: 50 %
     Route: 007
     Dates: start: 20201020
  37. OXYGEN. [Concomitant]
     Active Substance: OXYGEN
     Dosage: 60 %
     Route: 007
     Dates: start: 20201019
  38. PLACEBO [Suspect]
     Active Substance: UNSPECIFIED INGREDIENT
     Indication: COVID-19 PNEUMONIA
     Dosage: MOST RECENT DOSE OF BLINDED TOCILIZUMAB PRIOR TO EVENT ONSET: 16/OCT/2020 AT 13:36
     Route: 042
     Dates: start: 20201015
  39. PLACEBO [Suspect]
     Active Substance: UNSPECIFIED INGREDIENT
     Dosage: UNK
     Route: 042
     Dates: start: 20201016
  40. ALBUTEROL [SALBUTAMOL] [Concomitant]
     Active Substance: ALBUTEROL
     Indication: HYPOXIA
     Dosage: 2.5 MG
     Dates: start: 20201019, end: 20201024
  41. METOCLOPRAMIDE. [Concomitant]
     Active Substance: METOCLOPRAMIDE
     Dosage: UNK
     Dates: start: 20201019, end: 20201030
  42. SODIUM POLYSTYRENE SULFONATE. [Concomitant]
     Active Substance: SODIUM POLYSTYRENE SULFONATE
     Dosage: UNK
     Dates: start: 20201029, end: 20201029
  43. CISATRACURIUM. [Concomitant]
     Active Substance: CISATRACURIUM
     Dosage: UNK
     Dates: start: 20201019, end: 20201028
  44. DEXTROSE. [Concomitant]
     Active Substance: DEXTROSE
     Dosage: UNK
     Dates: start: 20201024, end: 20201026
  45. ACETAMINOPHEN. [Concomitant]
     Active Substance: ACETAMINOPHEN
     Indication: PYREXIA
     Dosage: UNK
     Dates: start: 20201023, end: 20201024
  46. OXYGEN. [Concomitant]
     Active Substance: OXYGEN
     Dosage: 60 L/MIN
     Route: 055
     Dates: start: 20201015
  47. OXYGEN. [Concomitant]
     Active Substance: OXYGEN
     Dosage: 100 %
     Route: 007
     Dates: start: 20201026
  48. OXYGEN. [Concomitant]
     Active Substance: OXYGEN
     Dosage: 60 %
     Route: 007
     Dates: start: 20201023
  49. OXYGEN. [Concomitant]
     Active Substance: OXYGEN
     Dosage: 100 %
     Route: 007
     Dates: start: 20201028
  50. OXYGEN. [Concomitant]
     Active Substance: OXYGEN
     Dosage: 100 %
     Route: 007
     Dates: start: 20201027
  51. OXYGEN. [Concomitant]
     Active Substance: OXYGEN
     Dosage: 50 %
     Route: 007
     Dates: start: 20201022
  52. REMDESIVIR. [Suspect]
     Active Substance: REMDESIVIR
     Dosage: 100 MG, QD
     Route: 042
     Dates: start: 20201016
  53. REMDESIVIR. [Suspect]
     Active Substance: REMDESIVIR
     Dosage: UNK
     Route: 042
     Dates: start: 20201023
  54. ARTIFICIAL TEARS [Concomitant]
     Active Substance: GLYCERIN\HYPROMELLOSES\POLYETHYLENE GLYCOL 400
     Dosage: UNK
     Dates: start: 20201019, end: 20201029
  55. DEXAMETHASONE. [Concomitant]
     Active Substance: DEXAMETHASONE
     Indication: COVID-19
     Dosage: UNK
     Dates: start: 20201015, end: 20201024
  56. METOPROLOL. [Concomitant]
     Active Substance: METOPROLOL
     Indication: HYPERTENSION
     Dosage: UNK
     Dates: start: 20201023, end: 20201024
  57. ACETAMINOPHEN. [Concomitant]
     Active Substance: ACETAMINOPHEN
     Indication: PAIN
  58. OXYGEN. [Concomitant]
     Active Substance: OXYGEN
     Dosage: 60 %
     Route: 007
     Dates: start: 20201022
  59. OXYGEN. [Concomitant]
     Active Substance: OXYGEN
     Dosage: 100 %
     Route: 007
     Dates: start: 20201024
  60. OXYGEN. [Concomitant]
     Active Substance: OXYGEN
     Dosage: 100 %
     Route: 007
     Dates: start: 20201029
  61. OXYGEN. [Concomitant]
     Active Substance: OXYGEN
     Dosage: 100 %
     Route: 007
     Dates: start: 20201030
  62. OXYGEN. [Concomitant]
     Active Substance: OXYGEN
     Dosage: 60 L/MIN
     Route: 055
     Dates: start: 20201017
  63. CALCIUM GLUCONATE. [Concomitant]
     Active Substance: CALCIUM GLUCONATE
     Indication: MULTIPLE ORGAN DYSFUNCTION SYNDROME
     Dosage: UNK
     Dates: start: 20201029, end: 20201029
  64. INSULIN GLARGINE [Concomitant]
     Active Substance: INSULIN GLARGINE
     Dosage: UNK
     Dates: start: 20201023, end: 20201023
  65. SODIUM BICARBONATE. [Concomitant]
     Active Substance: SODIUM BICARBONATE
     Dosage: UNK
     Dates: start: 20201024, end: 20201024
  66. VANCOMYCIN [Concomitant]
     Active Substance: VANCOMYCIN
     Indication: PNEUMONIA
     Dosage: UNK
     Dates: start: 20201024, end: 20201026
  67. HYDRALAZINE [Concomitant]
     Active Substance: HYDRALAZINE HYDROCHLORIDE
     Indication: HYPERTENSION
     Dosage: UNK
     Dates: start: 20201024, end: 20201024
  68. OXYGEN. [Concomitant]
     Active Substance: OXYGEN
     Dosage: 100 %
     Route: 007
     Dates: start: 20201027

REACTIONS (2)
  - Enterobacter bacteraemia [Not Recovered/Not Resolved]
  - Multiple organ dysfunction syndrome [Fatal]

NARRATIVE: CASE EVENT DATE: 20201023
